FAERS Safety Report 16563321 (Version 1)
Quarter: 2019Q3

REPORT INFORMATION
  Report Type: Spontaneous
  Country: CN (occurrence: CN)
  Receive Date: 20190711
  Receipt Date: 20190711
  Transmission Date: 20191004
  Serious: Yes (Hospitalization)
  Sender: FDA-Public Use
  Company Number: CN-BAXTER-2019BAX013612

PATIENT
  Age: 49 Year
  Sex: Female
  Weight: 60 kg

DRUGS (14)
  1. ENDOXAN [Suspect]
     Active Substance: CYCLOPHOSPHAMIDE
     Dosage: DOSE RE-INTRODUCED, CYCLOPHOSPHAMIDE + 0.9% NS
     Route: 042
  2. ETOPOSIDE. [Suspect]
     Active Substance: ETOPOSIDE
     Indication: LYMPHOMA
     Dosage: ETOPOSIDE + EPIRUBICIN 20MG + 0.9% NS 500 ML ON D2-4
     Route: 041
     Dates: start: 20181225, end: 20181227
  3. ETOPOSIDE. [Suspect]
     Active Substance: ETOPOSIDE
     Dosage: DOSE RE-INTRODUCED, ETOPOSIDE + EPIRUBICIN + 0.9% NS
     Route: 041
  4. EPIRUBICIN HYDROCHLORIDE. [Suspect]
     Active Substance: EPIRUBICIN HYDROCHLORIDE
     Dosage: DOSE RE-INTRODUCED, ETOPOSIDE + EPIRUBICIN + 0.9% NS
     Route: 041
  5. 0.9% SODIUM CHLORIDE INJECTION [Suspect]
     Active Substance: SODIUM CHLORIDE
     Dosage: DOSE RE-INTRODUCED, ETOPOSIDE + EPIRUBICIN + 0.9% NS
     Route: 041
  6. RITUXIMAB. [Suspect]
     Active Substance: RITUXIMAB
     Indication: LYMPHOMA
     Dosage: RITUXIMAB + 0.9% NS 600ML ON D1
     Route: 041
     Dates: start: 20181224, end: 20181224
  7. 0.9% SODIUM CHLORIDE INJECTION [Suspect]
     Active Substance: SODIUM CHLORIDE
     Indication: MEDICATION DILUTION
     Dosage: RITUXIMAB 600MG + 0.9% NS ON D1
     Route: 041
     Dates: start: 20181224, end: 20181224
  8. 0.9% SODIUM CHLORIDE INJECTION [Suspect]
     Active Substance: SODIUM CHLORIDE
     Dosage: CYCLOPHOSPHAMIDE 1G + 0.9% NS ON D5
     Route: 042
     Dates: start: 20181228, end: 20181228
  9. 0.9% SODIUM CHLORIDE INJECTION [Suspect]
     Active Substance: SODIUM CHLORIDE
     Dosage: ETOPOSIDE 90MG + EPIRUBICIN 20MG + 0.9% NS ON D2-4
     Route: 041
     Dates: start: 20181225, end: 20181227
  10. EPIRUBICIN HYDROCHLORIDE. [Suspect]
     Active Substance: EPIRUBICIN HYDROCHLORIDE
     Indication: LYMPHOMA
     Dosage: ETOPOSIDE 90 MG + EPIRUBICIN + 0.9% NS 500 ML ON D2-4
     Route: 041
     Dates: start: 20181225, end: 20181227
  11. 0.9% SODIUM CHLORIDE INJECTION [Suspect]
     Active Substance: SODIUM CHLORIDE
     Dosage: DOSE RE-INTRODUCED, CYCLOPHOSPHAMIDE + 0.9% NS
     Route: 042
  12. RITUXIMAB. [Suspect]
     Active Substance: RITUXIMAB
     Dosage: DOSE RE-INTRODUCED, RITUXIMAB + 0.9% NS
     Route: 041
  13. ENDOXAN [Suspect]
     Active Substance: CYCLOPHOSPHAMIDE
     Indication: LYMPHOMA
     Dosage: CYCLOPHOSPHAMIDE + 0.9% NS 80 ML ON D5
     Route: 042
     Dates: start: 20181228, end: 20181228
  14. 0.9% SODIUM CHLORIDE INJECTION [Suspect]
     Active Substance: SODIUM CHLORIDE
     Dosage: DOSE RE-INTRODUCED, RITUXIMAB + 0.9% NS
     Route: 041

REACTIONS (1)
  - Bone marrow failure [Recovering/Resolving]

NARRATIVE: CASE EVENT DATE: 20190102
